FAERS Safety Report 14448622 (Version 1)
Quarter: 2018Q1

REPORT INFORMATION
  Report Type: Spontaneous
  Country: US (occurrence: US)
  Receive Date: 20180126
  Receipt Date: 20180126
  Transmission Date: 20180509
  Serious: Yes (Hospitalization)
  Sender: FDA-Public Use
  Company Number: US-SHIRE-US201732749

PATIENT
  Age: 35 Year
  Sex: Female

DRUGS (1)
  1. GATTEX [Suspect]
     Active Substance: TEDUGLUTIDE\WATER
     Indication: SHORT-BOWEL SYNDROME
     Dosage: 2.65 MG, 1X/DAY:QD
     Route: 058
     Dates: start: 20170925

REACTIONS (2)
  - Dehydration [Unknown]
  - Insurance issue [Unknown]
